FAERS Safety Report 10572775 (Version 1)
Quarter: 2014Q4

REPORT INFORMATION
  Report Type: Spontaneous
  Country: GB (occurrence: None)
  Receive Date: 20141106
  Receipt Date: 20141106
  Transmission Date: 20150529
  Serious: Yes (Congenital Anomaly)
  Sender: FDA-Public Use
  Company Number: IMP_08032_2014

PATIENT
  Age: 4 Month

DRUGS (2)
  1. DIVALPROEX SODIUM. [Suspect]
     Active Substance: DIVALPROEX SODIUM
     Indication: MATERNAL EXPOSURE TIMING UNSPECIFIED
  2. LAMOTRIGINE. [Concomitant]
     Active Substance: LAMOTRIGINE

REACTIONS (5)
  - Dysmorphism [None]
  - Foetal anticonvulsant syndrome [None]
  - Cytogenetic abnormality [None]
  - Speech disorder developmental [None]
  - Maternal drugs affecting foetus [None]
